FAERS Safety Report 5198848-1 (Version None)
Quarter: 2006Q4

REPORT INFORMATION
  Report Type: 
  Country: None (occurrence: None)
  Receive Date: 20060925
  Receipt Date: 20060609
  Transmission Date: 20070319
  Serious: Yes (Disabling)
  Sender: FDA-Public Use
  Company Number: PHEH2006US07665

PATIENT
  Age: 30 Year
  Sex: Female

DRUGS (2)
  1. FOCALIN XR [Suspect]
     Indication: ATTENTION DEFICIT/HYPERACTIVITY DISORDER
     Dosage: 20 MG, QD, ORAL
     Route: 048
     Dates: start: 20060501, end: 20060601
  2. DEPAKOTE [Concomitant]

REACTIONS (1)
  - CONVULSION [None]
